FAERS Safety Report 7360208-2 (Version None)
Quarter: 2011Q1

REPORT INFORMATION
  Report Type: 
  Country: None (occurrence: None)
  Receive Date: 20110318
  Receipt Date: 20110311
  Transmission Date: 20110831
  Serious: Yes (Other)
  Sender: FDA-Public Use
  Company Number: US-TEVA-271074USA

PATIENT
  Age: 76 Year
  Sex: Male
  Weight: 104.42 kg

DRUGS (8)
  1. ATORVASTATIN CALCIUM [Suspect]
     Indication: BLOOD CHOLESTEROL INCREASED
     Dates: start: 19860101, end: 20050101
  2. GLICLAZIDE [Concomitant]
  3. LINUM USITATISSIMUM SEED OIL [Concomitant]
  4. CLOPIDOGREL [Suspect]
     Dates: start: 20090501
  5. PAROXETINE [Concomitant]
  6. SIMVASTATIN [Suspect]
     Dates: start: 20090501
  7. HYDROCHLOROTHIAZIDE [Suspect]
     Dates: start: 20090501
  8. GLIPIZIDE [Concomitant]

REACTIONS (2)
  - VASCULAR OCCLUSION [None]
  - VENOUS OCCLUSION [None]
